FAERS Safety Report 7239171-0 (Version None)
Quarter: 2011Q1

REPORT INFORMATION
  Report Type: 
  Country: None (occurrence: None)
  Receive Date: 20110121
  Receipt Date: 20070315
  Transmission Date: 20110831
  Serious: Yes (Other)
  Sender: FDA-Public Use
  Company Number: PHHY2007CH03805

PATIENT
  Age: 72 Year
  Sex: Female

DRUGS (5)
  1. DICLOFENAC [Suspect]
     Dosage: 50-100 MG/DAY
  2. COLCHICINE [Concomitant]
     Dosage: 1 MG PER DAY
  3. URICASE [Concomitant]
     Dosage: 14 MG, DAILY
     Route: 042
  4. CORTICOSTEROID [Concomitant]
     Dosage: UNK
     Route: 048
  5. ANAKINRA [Concomitant]
     Dosage: UNK

REACTIONS (5)
  - ARTHRITIS [None]
  - DIARRHOEA [None]
  - GASTROINTESTINAL HAEMORRHAGE [None]
  - GASTROINTESTINAL DISORDER [None]
  - ABDOMINAL PAIN [None]
